FAERS Safety Report 19399613 (Version 2)
Quarter: 2021Q2

REPORT INFORMATION
  Report Type: Report from Study
  Country: CA (occurrence: CA)
  Receive Date: 20210610
  Receipt Date: 20210618
  Transmission Date: 20210717
  Serious: Yes (Hospitalization, Other)
  Sender: FDA-Public Use
  Company Number: CA-TAKEDA-2021TUS036538

PATIENT
  Age: 65 Year
  Sex: Male

DRUGS (4)
  1. PERINDOPRIL [Concomitant]
     Active Substance: PERINDOPRIL
     Dosage: UNK
  2. INDAPAMIDE. [Concomitant]
     Active Substance: INDAPAMIDE
     Dosage: UNK
  3. VEDOLIZUMAB [Suspect]
     Active Substance: VEDOLIZUMAB
     Indication: COLITIS ULCERATIVE
     Dosage: 300 MILLIGRAM
     Route: 042
     Dates: start: 20210430
  4. SALOFALK [Concomitant]
     Dosage: UNK

REACTIONS (4)
  - Fall [Unknown]
  - Headache [Unknown]
  - Syncope [Unknown]
  - Haemorrhage intracranial [Unknown]
